FAERS Safety Report 6733480-7 (Version None)
Quarter: 2010Q2

REPORT INFORMATION
  Report Type: 
  Country: None (occurrence: None)
  Receive Date: 20100520
  Receipt Date: 20100513
  Transmission Date: 20101027
  Serious: Yes (Other)
  Sender: FDA-Public Use
  Company Number: PHEH2010US02250

PATIENT
  Sex: Female
  Weight: 72.562 kg

DRUGS (1)
  1. RECLAST [Suspect]
     Dosage: 1 PER YEAR
     Route: 042

REACTIONS (4)
  - DIARRHOEA [None]
  - ENDODONTIC PROCEDURE [None]
  - OSTEONECROSIS OF JAW [None]
  - PAIN IN JAW [None]
